FAERS Safety Report 4577513-5 (Version None)
Quarter: 2005Q1

REPORT INFORMATION
  Report Type: 
  Country: None (occurrence: None)
  Receive Date: 20050208
  Receipt Date: 20050126
  Transmission Date: 20050727
  Serious: Yes (Hospitalization)
  Sender: FDA-Public Use
  Company Number: 2005015919

PATIENT
  Age: 54 Year
  Sex: Male
  Weight: 64 kg

DRUGS (6)
  1. IDARUBICIN HYDROCHLORIDE POWDER, STERILE (IDARUBICIN HYDROCHLORIDE) [Suspect]
     Indication: ILL-DEFINED DISORDER
     Dosage: 21 MG (10 MG, EVERY DAY), INTRAVENOUS
     Route: 042
     Dates: start: 20041111, end: 20041113
  2. CYTARABINE [Suspect]
     Indication: ILL-DEFINED DISORDER
     Dosage: 3.6 GRAM (EVERY DAY), INTRAVENOUS
     Route: 042
     Dates: start: 20041111, end: 20041115
  3. FILGRASTIM (FILGRASTIM) [Suspect]
     Indication: ILL-DEFINED DISORDER
     Dosage: SUBCUTANEOUS
     Route: 058
     Dates: start: 20041116, end: 20041201
  4. AMPHOTERICIN B [Suspect]
     Indication: ILL-DEFINED DISORDER
     Dosage: 1500 MG (250 MG, EVERY DAY), ORAL
     Route: 048
     Dates: start: 20041110, end: 20041201
  5. OFLOXACIN [Concomitant]
  6. CEFEPIME (CEFEPIME) [Concomitant]

REACTIONS (8)
  - BLOOD GASES ABNORMAL [None]
  - COMPUTERISED TOMOGRAM ABNORMAL [None]
  - CREPITATIONS [None]
  - DRUG TOXICITY [None]
  - DYSPNOEA [None]
  - ESCHERICHIA INFECTION [None]
  - HYPOXIA [None]
  - LUNG DISORDER [None]
